FAERS Safety Report 13185615 (Version 5)
Quarter: 2017Q4

REPORT INFORMATION
  Report Type: Report from Study
  Country: CA (occurrence: CA)
  Receive Date: 20170203
  Receipt Date: 20171027
  Transmission Date: 20180320
  Serious: Yes (Disabling, Other)
  Sender: FDA-Public Use
  Company Number: CA-JAZZ-2016-CA-009525

PATIENT
  Sex: Female

DRUGS (12)
  1. XYREM [Suspect]
     Active Substance: SODIUM OXYBATE
     Indication: CATAPLEXY
     Dosage: 3G, BID
     Route: 048
     Dates: start: 20090326, end: 20130716
  2. XYREM [Suspect]
     Active Substance: SODIUM OXYBATE
     Dosage: 2.75G, QD
     Route: 048
     Dates: start: 20130813
  3. XYREM [Suspect]
     Active Substance: SODIUM OXYBATE
     Dosage: 2.25 G, SECOND DOSE
     Route: 048
     Dates: start: 20171016
  4. XYREM [Suspect]
     Active Substance: SODIUM OXYBATE
     Dosage: 3G, BID
     Route: 048
     Dates: start: 20130724
  5. XYREM [Suspect]
     Active Substance: SODIUM OXYBATE
     Dosage: 3 G, FIRST DOSE
     Route: 048
     Dates: start: 20130813
  6. XYREM [Suspect]
     Active Substance: SODIUM OXYBATE
     Dosage: 2.5G, QD
     Route: 048
     Dates: start: 20130908
  7. XYREM [Suspect]
     Active Substance: SODIUM OXYBATE
     Dosage: 2.5 G, SECOND DOSE
     Route: 048
     Dates: start: 20130908
  8. XYREM [Suspect]
     Active Substance: SODIUM OXYBATE
     Dosage: 2G, QD
     Route: 048
     Dates: start: 20170307
  9. XYREM [Suspect]
     Active Substance: SODIUM OXYBATE
     Dosage: 2 G, FIRST DOSE
     Route: 048
     Dates: start: 20170307, end: 2017
  10. XYREM [Suspect]
     Active Substance: SODIUM OXYBATE
     Dosage: 2.5G, QD
     Route: 048
     Dates: start: 2017, end: 2017
  11. XYREM [Suspect]
     Active Substance: SODIUM OXYBATE
     Dosage: 3.25 G, FIRST DOSE
     Route: 048
     Dates: start: 20171016
  12. XYREM [Suspect]
     Active Substance: SODIUM OXYBATE
     Dosage: 1.5G, BID
     Route: 048
     Dates: start: 20130721

REACTIONS (2)
  - Arthritis [Unknown]
  - Sciatica [Not Recovered/Not Resolved]
